FAERS Safety Report 17139806 (Version 2)
Quarter: 2020Q1

REPORT INFORMATION
  Report Type: Spontaneous
  Country: JP (occurrence: JP)
  Receive Date: 20191211
  Receipt Date: 20200213
  Transmission Date: 20200409
  Serious: Yes (Hospitalization, Other)
  Sender: FDA-Public Use
  Company Number: JP-BRISTOL-MYERS SQUIBB COMPANY-BMS-2019-118100

PATIENT
  Age: 4 Decade
  Sex: Male

DRUGS (1)
  1. OPDIVO [Suspect]
     Active Substance: NIVOLUMAB
     Indication: GASTRIC CANCER
     Dosage: UNK
     Route: 041

REACTIONS (6)
  - Hypothyroidism [Unknown]
  - Enterocolitis [Recovering/Resolving]
  - Hepatic function abnormal [Recovering/Resolving]
  - Pancreatitis [Recovering/Resolving]
  - Sjogren^s syndrome [Recovering/Resolving]
  - Cholangitis [Recovering/Resolving]
